FAERS Safety Report 8875558 (Version 3)
Quarter: 2013Q2

REPORT INFORMATION
  Report Type: Report from Study
  Country: US (occurrence: US)
  Receive Date: 20121030
  Receipt Date: 20130513
  Transmission Date: 20140414
  Serious: Yes (Other)
  Sender: FDA-Public Use
  Company Number: US-VERTEX PHARMACEUTICAL INC.-2012-023679

PATIENT
  Age: 62 Year
  Sex: Male

DRUGS (10)
  1. VX-950 (TELAPREVIR) [Suspect]
     Indication: HEPATITIS C
     Dosage: UNK
     Route: 048
     Dates: start: 20120728, end: 20121020
  2. RIBAVIRIN [Suspect]
     Indication: HEPATITIS C
     Dosage: UNK UNK, QD
     Route: 048
     Dates: start: 20120728
  3. RIBAVIRIN [Suspect]
     Dosage: 800 MG, QD
     Route: 048
  4. PEGINTRON [Suspect]
     Indication: HEPATITIS C
     Dosage: UNK
     Route: 058
     Dates: start: 20120728
  5. PEGINTRON [Suspect]
     Dosage: UNK
  6. PROZAC [Concomitant]
  7. METFORMIN [Concomitant]
  8. OXYCODONE [Concomitant]
  9. PRILOSEC                           /00661201/ [Concomitant]
  10. ONDANSETRON [Concomitant]

REACTIONS (5)
  - Anaemia [Recovered/Resolved]
  - White blood cell count decreased [Not Recovered/Not Resolved]
  - Fatigue [Not Recovered/Not Resolved]
  - Pruritus [Not Recovered/Not Resolved]
  - Nausea [Not Recovered/Not Resolved]
